FAERS Safety Report 6072136-3 (Version None)
Quarter: 2009Q1

REPORT INFORMATION
  Report Type: 
  Country: None (occurrence: None)
  Receive Date: 20090210
  Receipt Date: 20090203
  Transmission Date: 20090719
  Serious: Yes (Hospitalization, Congenital Anomaly)
  Sender: FDA-Public Use
  Company Number: A0685050A

PATIENT
  Sex: Female
  Weight: 3.8 kg

DRUGS (2)
  1. PAXIL [Suspect]
     Indication: DEPRESSION
     Dosage: 25MG PER DAY
     Dates: start: 19990101, end: 20010101
  2. PAXIL CR [Suspect]
     Indication: DEPRESSION

REACTIONS (11)
  - CAESAREAN SECTION [None]
  - DECREASED APPETITE [None]
  - DRUG EXPOSURE DURING PREGNANCY [None]
  - EMOTIONAL DISTRESS [None]
  - FALLOT'S TETRALOGY [None]
  - FEAR [None]
  - IRRITABILITY [None]
  - POSTPERICARDIOTOMY SYNDROME [None]
  - PYREXIA [None]
  - RESPIRATORY RATE INCREASED [None]
  - VENTRICULAR SEPTAL DEFECT [None]
